FAERS Safety Report 6664125-2 (Version None)
Quarter: 2010Q2

REPORT INFORMATION
  Report Type: 
  Country: None (occurrence: None)
  Receive Date: 20100401
  Receipt Date: 20100326
  Transmission Date: 20101027
  Serious: Yes (Life-Threatening, Hospitalization)
  Sender: FDA-Public Use
  Company Number: B0639741A

PATIENT
  Sex: Female
  Weight: 43 kg

DRUGS (7)
  1. LAPATINIB [Suspect]
     Indication: BREAST CANCER
     Dosage: 23750MG CUMULATIVE DOSE
     Route: 048
     Dates: start: 20100218
  2. VINORELBINE [Suspect]
     Indication: BREAST CANCER
     Dosage: 64MG CUMULATIVE DOSE
     Route: 042
     Dates: start: 20100225
  3. TAREG [Concomitant]
     Indication: HYPERTENSION
     Route: 048
  4. CORTANCYL [Concomitant]
     Indication: VOMITING
     Route: 048
     Dates: start: 20100304
  5. STILNOX [Concomitant]
     Indication: INSOMNIA
     Route: 048
  6. ZOMETA [Concomitant]
     Route: 048
  7. ALPRAZOLAM [Concomitant]
     Indication: ANXIETY

REACTIONS (9)
  - CONFUSIONAL STATE [None]
  - DEHYDRATION [None]
  - DIARRHOEA [None]
  - HYPOTHERMIA [None]
  - NAUSEA [None]
  - NEUTROPENIA [None]
  - PERFORMANCE STATUS DECREASED [None]
  - SEPTIC SHOCK [None]
  - VOMITING [None]
